FAERS Safety Report 8790676 (Version 2)
Quarter: 2012Q4

REPORT INFORMATION
  Report Type: Spontaneous
  Country: US (occurrence: None)
  Receive Date: 20120830
  Receipt Date: 20120926
  Transmission Date: 20130627
  Serious: Yes (Hospitalization, Other)
  Sender: FDA-Public Use
  Company Number: 2012033202

PATIENT
  Age: 3 Year
  Sex: Male
  Weight: 16.33 kg

DRUGS (9)
  1. HIZENTRA (IMMUNOGLOBULIN HUMAN NORMAL) [Suspect]
     Indication: HYPOGLOBULINAEMIA
     Dosage: 2 g 1x/week, in multiple sites over 1-2 hours subcutaneous
     Route: 058
     Dates: start: 20120802, end: 20120802
  2. ALBUTEROL (SALBUTAMOL) [Concomitant]
  3. DIPHENHYDRAMINE (DIPHENHYDRAMINE) [Concomitant]
  4. LIDOCAINE/PRILOCAINE (EMLA /00675501/) [Concomitant]
  5. EPI-PEN JR (EPINEPHRINE HYDROCHLORIDE) [Concomitant]
  6. LMX (LIDOCAINE) [Concomitant]
  7. PHENOBARBITAL (PHENOBARBITAL) [Concomitant]
  8. FLOVENT (FLUTICASONE PROPIONATE) [Concomitant]
  9. PREVACID (LANSOPRAZOLE) [Concomitant]

REACTIONS (2)
  - Infusion site infection [None]
  - Staphylococcal infection [None]
